FAERS Safety Report 4346250-4 (Version None)
Quarter: 2004Q1

REPORT INFORMATION
  Report Type: 
  Country: None (occurrence: None)
  Receive Date: 20040325
  Receipt Date: 20031218
  Transmission Date: 20041129
  Serious: No
  Sender: FDA-Public Use
  Company Number: USA030946848

PATIENT
  Age: 72 Year
  Sex: Female
  Weight: 49 kg

DRUGS (9)
  1. FORTEO [Suspect]
     Indication: OSTEOPOROSIS
     Dosage: 20 UG/DAY
     Dates: start: 20030819
  2. SYNTHROID [Concomitant]
  3. NEXIUM [Concomitant]
  4. PROPECIA [Concomitant]
  5. CLARITIN [Concomitant]
  6. VITAMIN E [Concomitant]
  7. VITAMIN C [Concomitant]
  8. ZINC [Concomitant]
  9. VITAMIN D [Concomitant]

REACTIONS (7)
  - CATARACT OPERATION [None]
  - HEADACHE [None]
  - INJECTION SITE ERYTHEMA [None]
  - INJECTION SITE HAEMORRHAGE [None]
  - LENS DISORDER [None]
  - PAIN IN EXTREMITY [None]
  - VISION BLURRED [None]
